FAERS Safety Report 5662007-6 (Version None)
Quarter: 2008Q1

REPORT INFORMATION
  Report Type: 
  Country: None (occurrence: None)
  Receive Date: 20080205
  Receipt Date: 20070815
  Transmission Date: 20080703
  Serious: Yes (Hospitalization)
  Sender: FDA-Public Use
  Company Number: MEDI-0005949

PATIENT
  Age: 66 Year
  Sex: Male
  Weight: 112.9457 kg

DRUGS (11)
  1. ETHYOL [Suspect]
     Indication: LUNG NEOPLASM MALIGNANT
     Dosage: 500 MG, 5 IN 5 D, SUBCUTANEOUS ; 500 MG, 5 IN 5 D, SUBCUTANEOUS
     Route: 058
     Dates: start: 20070725, end: 20070802
  2. ETHYOL [Suspect]
     Indication: LUNG NEOPLASM MALIGNANT
     Dosage: 500 MG, 5 IN 5 D, SUBCUTANEOUS ; 500 MG, 5 IN 5 D, SUBCUTANEOUS
     Route: 058
     Dates: start: 20070803, end: 20070806
  3. RADIATION THERAPY [Concomitant]
  4. ETOPOSIDE [Concomitant]
  5. COMPAZINE [Concomitant]
  6. ATENOLOL [Concomitant]
  7. LOTENSIN [Concomitant]
  8. SYNTHROID [Concomitant]
  9. CARAFATE [Concomitant]
  10. LORTAB [Concomitant]
  11. MVI (VITAMINS NOS) [Concomitant]

REACTIONS (2)
  - INJECTION SITE ERYTHEMA [None]
  - PYREXIA [None]
